FAERS Safety Report 12865168 (Version 1)
Quarter: 2016Q4

REPORT INFORMATION
  Report Type: Spontaneous
  Country: US (occurrence: US)
  Receive Date: 20161018
  Receipt Date: 20161018
  Transmission Date: 20170207
  Serious: Yes (Life-Threatening, Other)
  Sender: FDA-Public Use
  Company Number: None

PATIENT
  Age: 71 Year
  Sex: Female
  Weight: 88.53 kg

DRUGS (11)
  1. RESTASIS [Suspect]
     Active Substance: CYCLOSPORINE
     Indication: DRY EYE
     Dosage: 1 DROP FOR VIAL 2X DAILY 1 DROP IN EACH EYE
     Dates: start: 201510, end: 201510
  2. FUROSEMIDE. [Concomitant]
     Active Substance: FUROSEMIDE
  3. RESTASIS [Suspect]
     Active Substance: CYCLOSPORINE
     Indication: IRITIS
     Dosage: 1 DROP FOR VIAL 2X DAILY 1 DROP IN EACH EYE
     Dates: start: 201510, end: 201510
  4. VI A [Concomitant]
  5. PLAVIX [Concomitant]
     Active Substance: CLOPIDOGREL BISULFATE
  6. GLUCOSE TEST METER + SUPPLIES [Concomitant]
  7. MOTORIZE WHEELCHAIR [Concomitant]
  8. TYLENOL [Concomitant]
     Active Substance: ACETAMINOPHEN
  9. RESTASIS [Suspect]
     Active Substance: CYCLOSPORINE
     Indication: UVEITIS
     Dosage: 1 DROP FOR VIAL 2X DAILY 1 DROP IN EACH EYE
     Dates: start: 201510, end: 201510
  10. LANTUS [Concomitant]
     Active Substance: INSULIN GLARGINE
  11. VI D3 [Concomitant]

REACTIONS (7)
  - Headache [None]
  - Diarrhoea [None]
  - Eye swelling [None]
  - Swelling face [None]
  - Unevaluable event [None]
  - Local swelling [None]
  - Swelling [None]

NARRATIVE: CASE EVENT DATE: 201509
